FAERS Safety Report 16239414 (Version 2)
Quarter: 2019Q2

REPORT INFORMATION
  Report Type: Report from Study
  Country: US (occurrence: US)
  Receive Date: 20190425
  Receipt Date: 20190605
  Transmission Date: 20190711
  Serious: Yes (Other)
  Sender: FDA-Public Use
  Company Number: US-PFIZER INC-2019062361

PATIENT
  Age: 87 Year
  Sex: Female

DRUGS (1)
  1. IBRANCE [Suspect]
     Active Substance: PALBOCICLIB
     Indication: BREAST CANCER METASTATIC
     Dosage: 125 MG, CYCLIC (21 OUT OF 28 DAYS, ONCE DAILY)
     Route: 048
     Dates: start: 20190104

REACTIONS (10)
  - Contusion [Unknown]
  - Wound infection [Unknown]
  - Dry mouth [Unknown]
  - Musculoskeletal pain [Unknown]
  - Myalgia [Unknown]
  - Neuropathy peripheral [Not Recovered/Not Resolved]
  - Wound [Unknown]
  - Pain in extremity [Unknown]
  - Epistaxis [Unknown]
  - Product dose omission [Unknown]

NARRATIVE: CASE EVENT DATE: 2019
